FAERS Safety Report 4439615-3 (Version None)
Quarter: 2004Q3

REPORT INFORMATION
  Report Type: 
  Country: None (occurrence: None)
  Receive Date: 20040901
  Receipt Date: 20040901
  Transmission Date: 20050211
  Serious: Yes (Hospitalization)
  Sender: FDA-Public Use
  Company Number: None

PATIENT
  Sex: Male
  Weight: 77.1115 kg

DRUGS (5)
  1. VICODIN [Suspect]
     Indication: PAIN
     Dosage: PO [PRIOR TO ADMISSION]
     Route: 048
  2. XANAX [Suspect]
     Indication: ANXIETY
     Dosage: PO, PRIOR TO ADMISSION
     Route: 048
  3. LISINOPRIL [Concomitant]
  4. WELLBUTRIN [Concomitant]
  5. PROZAC [Concomitant]

REACTIONS (2)
  - CONFUSIONAL STATE [None]
  - DISORIENTATION [None]
